FAERS Safety Report 10023717 (Version 1)
Quarter: 2014Q1

REPORT INFORMATION
  Report Type: Spontaneous
  Country: US (occurrence: None)
  Receive Date: 20140319
  Receipt Date: 20140319
  Transmission Date: 20141002
  Serious: Yes (Life-Threatening, Hospitalization, Disabling)
  Sender: FDA-Public Use
  Company Number: None

PATIENT
  Age: 21 Year
  Sex: Female
  Weight: 58 kg

DRUGS (1)
  1. IMPLANON [Suspect]
     Indication: CONTRACEPTION
     Dosage: EVERY 3 YEARS, UNDER THE SKIN OF YOUR FOREARM
     Dates: start: 20120323, end: 20120718

REACTIONS (8)
  - Menorrhagia [None]
  - Fatigue [None]
  - Abdominal pain [None]
  - Pancreatitis [None]
  - Stent placement [None]
  - Unevaluable event [None]
  - Amenorrhoea [None]
  - Headache [None]
